FAERS Safety Report 5701045-1 (Version None)
Quarter: 2008Q2

REPORT INFORMATION
  Report Type: 
  Country: None (occurrence: None)
  Receive Date: 20080410
  Receipt Date: 20080401
  Transmission Date: 20081010
  Serious: Yes (Hospitalization)
  Sender: FDA-Public Use
  Company Number: US-ABBOTT-08P-163-0440044-00

PATIENT
  Sex: Female
  Weight: 63.56 kg

DRUGS (6)
  1. HUMIRA [Suspect]
     Indication: GASTROINTESTINAL DISORDER
     Route: 058
     Dates: start: 20060201, end: 20070501
  2. HUMIRA [Suspect]
     Indication: OSTEOMYELITIS
  3. INFLIXIMAB [Concomitant]
     Indication: GASTROINTESTINAL DISORDER
     Route: 042
  4. INFLIXIMAB [Concomitant]
     Indication: OSTEOMYELITIS
  5. METHOTREXATE [Concomitant]
     Indication: GASTROINTESTINAL DISORDER
     Route: 048
  6. METHOTREXATE [Concomitant]
     Indication: OSTEOMYELITIS

REACTIONS (3)
  - ANAEMIA [None]
  - INJECTION SITE PAIN [None]
  - RECTAL HAEMORRHAGE [None]
